FAERS Safety Report 12300767 (Version 3)
Quarter: 2016Q2

REPORT INFORMATION
  Report Type: Report from Study
  Country: GT (occurrence: GT)
  Receive Date: 20160425
  Receipt Date: 20160630
  Transmission Date: 20160815
  Serious: Yes (Hospitalization)
  Sender: FDA-Public Use
  Company Number: GT-ABBVIE-16P-069-1610593-00

PATIENT
  Age: 57 Year
  Sex: Male

DRUGS (1)
  1. ZEMPLAR [Suspect]
     Active Substance: PARICALCITOL
     Indication: HYPERPARATHYROIDISM SECONDARY
     Dosage: ZEMPLAR IS ADMINISTERED VIA HAEMODIALYSIS ACCESS.
     Route: 042
     Dates: start: 201503

REACTIONS (10)
  - Device related infection [Recovered/Resolved]
  - Malaise [Recovered/Resolved]
  - Anaemia [Recovering/Resolving]
  - Incision site pain [Not Recovered/Not Resolved]
  - Chills [Recovered/Resolved]
  - Catheter site infection [Not Recovered/Not Resolved]
  - Dyspnoea [Recovered/Resolved]
  - Incision site haemorrhage [Not Recovered/Not Resolved]
  - Dyspnoea [Recovered/Resolved]
  - Hypertension [Not Recovered/Not Resolved]

NARRATIVE: CASE EVENT DATE: 201511
